FAERS Safety Report 7523110-9 (Version None)
Quarter: 2011Q2

REPORT INFORMATION
  Report Type: 
  Country: None (occurrence: None)
  Receive Date: 20110601
  Receipt Date: 20110601
  Transmission Date: 20111010
  Serious: Yes (Hospitalization)
  Sender: FDA-Public Use
  Company Number: None

PATIENT
  Sex: Female
  Weight: 80.9 kg

DRUGS (3)
  1. TOPOTECAN [Suspect]
     Dosage: 4.5 MG
  2. ETOPOSIDE [Suspect]
     Dosage: 411 MG
  3. CISPLATIN [Suspect]
     Dosage: 117 MG

REACTIONS (5)
  - FEBRILE NEUTROPENIA [None]
  - SMALL CELL LUNG CANCER STAGE UNSPECIFIED [None]
  - HYPOTENSION [None]
  - VOMITING [None]
  - NAUSEA [None]
